FAERS Safety Report 4339814-5 (Version None)
Quarter: 2004Q2

REPORT INFORMATION
  Report Type: 
  Country: None (occurrence: None)
  Receive Date: 20040414
  Receipt Date: 20040414
  Transmission Date: 20050107
  Serious: Yes (Congenital Anomaly)
  Sender: FDA-Public Use
  Company Number: None

PATIENT
  Age: 28 Year
  Sex: Female
  Weight: 70 kg

DRUGS (2)
  1. TOPAMAX [Suspect]
     Indication: CONVULSION
     Dosage: 200MG Q MORNING; 300MG Q EVENING
     Dates: start: 19980101
  2. ACETAZOLAMIDE [Concomitant]

REACTIONS (7)
  - CLEFT LIP AND PALATE [None]
  - COMPLICATIONS OF MATERNAL EXPOSURE TO THERAPEUTIC DRUGS [None]
  - FOETAL DISORDER [None]
  - MATERNAL DRUGS AFFECTING FOETUS [None]
  - PREGNANCY [None]
  - TALIPES [None]
  - TREATMENT NONCOMPLIANCE [None]
